FAERS Safety Report 6946287-2 (Version None)
Quarter: 2010Q3

REPORT INFORMATION
  Report Type: 
  Country: None (occurrence: None)
  Receive Date: 20100827
  Receipt Date: 20100728
  Transmission Date: 20110219
  Serious: Yes (Other)
  Sender: FDA-Public Use
  Company Number: PHEH2009US02429

PATIENT
  Sex: Female
  Weight: 125 kg

DRUGS (49)
  1. ZOMETA [Suspect]
     Indication: NEOPLASM MALIGNANT
     Dosage: 3.5 MG, QMO
     Dates: start: 20070515, end: 20071218
  2. INSULIN [Concomitant]
     Indication: TYPE 1 DIABETES MELLITUS
  3. PAXIL [Concomitant]
  4. REGLAN [Concomitant]
  5. WELLBUTRIN [Concomitant]
  6. DECADRON [Concomitant]
  7. COUMADIN [Concomitant]
  8. HERCEPTIN [Concomitant]
  9. CHEMOTHERAPEUTICS NOS [Concomitant]
  10. RADIATION [Concomitant]
  11. XELODA [Concomitant]
  12. AVELOX [Concomitant]
  13. TUSSIONEX [Concomitant]
  14. LOMOTIL [Concomitant]
  15. QUESTRAN [Concomitant]
  16. FLEXERIL [Concomitant]
  17. MYCOSTATIN [Concomitant]
  18. PERIDEX [Concomitant]
  19. CLINDAMYCIN [Concomitant]
  20. DIFLUCAN [Concomitant]
  21. ATARAX [Concomitant]
  22. MEGACE [Concomitant]
  23. ULTRAM [Concomitant]
     Dosage: 50 MG / Q4H PRN
  24. ACETAMINOPHEN AND HYDROCODONE BITARTRATE [Concomitant]
     Dosage: UNK / Q6H PRN
  25. PHENERGAN ^AVENTIS PHARMA^ [Concomitant]
     Dosage: 25 MG / Q6H PRN
  26. ZOFRAN [Concomitant]
     Dosage: 4 MG / Q4H PRN
  27. LIDOCAINE HYDROCHLORIDE [Concomitant]
     Dosage: 50 ML
  28. SENSORCAINE W/EPINEPHRINE BITARTRATE [Concomitant]
     Dosage: 30 ML
  29. NOVOLOG [Concomitant]
     Dosage: UNK
  30. TYKERB [Concomitant]
     Dosage: 1250 MG/ DAILY
  31. XANAX [Concomitant]
     Dosage: 0.5 MG / AS NEEDED
  32. PENICILLIN V POTASSIUM [Concomitant]
     Dosage: 500 MG / 4 X DAILY
     Route: 048
  33. FLUCONAZOLE [Concomitant]
     Dosage: 100 MG / DAILY
     Route: 048
  34. FLUDROCORTISONE ACETATE [Concomitant]
     Dosage: 0.1 MG / DAILY
     Route: 048
  35. MIRTAZAPINE [Concomitant]
     Dosage: 15 MG / DAILY
     Route: 048
  36. BENADRYL ^ACHE^ [Concomitant]
     Dosage: UNK
  37. DEXAMETHASONE [Concomitant]
     Dosage: UNK
  38. WARFARIN SODIUM [Concomitant]
     Dosage: 1 MG / DAILY
  39. TAXOTERE [Concomitant]
     Dosage: UNK
     Dates: start: 20070515
  40. RADIATION THERAPY [Concomitant]
     Dosage: UNK
     Dates: start: 20070601
  41. AMOXICILLIN [Concomitant]
  42. EMLA [Concomitant]
  43. MYCELEX [Concomitant]
  44. VICODIN [Concomitant]
  45. KEFLEX [Concomitant]
     Dosage: 500 BID
  46. DARVOCET-N 100 [Concomitant]
  47. MINOCIN [Concomitant]
  48. ACTIVELLA [Concomitant]
  49. HERCEPTIN [Concomitant]

REACTIONS (78)
  - ABDOMINAL PAIN UPPER [None]
  - ACTINOMYCOSIS [None]
  - ANAEMIA [None]
  - ANHEDONIA [None]
  - ANXIETY [None]
  - BACK PAIN [None]
  - BLOOD PRESSURE ABNORMAL [None]
  - BODY TEMPERATURE INCREASED [None]
  - BONE DENSITY DECREASED [None]
  - BONE DISORDER [None]
  - CANDIDIASIS [None]
  - CONGESTIVE CARDIOMYOPATHY [None]
  - CONVULSION [None]
  - COUGH [None]
  - DEBRIDEMENT [None]
  - DEHYDRATION [None]
  - DENTAL CARIES [None]
  - DENTAL PROSTHESIS USER [None]
  - DIARRHOEA [None]
  - DIPLOPIA [None]
  - DISCOMFORT [None]
  - DIVERTICULUM [None]
  - DIZZINESS [None]
  - DRY MOUTH [None]
  - EAR CONGESTION [None]
  - EATING DISORDER [None]
  - EDENTULOUS [None]
  - EMOTIONAL DISTRESS [None]
  - EMPHYSEMA [None]
  - ENDODONTIC PROCEDURE [None]
  - FALL [None]
  - FISTULA [None]
  - GAIT DISTURBANCE [None]
  - GINGIVAL BLEEDING [None]
  - GINGIVAL PAIN [None]
  - HEADACHE [None]
  - HYPOAESTHESIA [None]
  - HYPOPHAGIA [None]
  - HYPOTENSION [None]
  - INJURY [None]
  - LEFT VENTRICULAR DYSFUNCTION [None]
  - LIFE EXPECTANCY SHORTENED [None]
  - LOOSE TOOTH [None]
  - LYMPHADENECTOMY [None]
  - MALIGNANT TUMOUR EXCISION [None]
  - MALNUTRITION [None]
  - MASTECTOMY [None]
  - METASTASES TO BONE [None]
  - METASTASES TO CENTRAL NERVOUS SYSTEM [None]
  - NEOPLASM [None]
  - NEOPLASM RECURRENCE [None]
  - NEUROPATHY PERIPHERAL [None]
  - OESOPHAGITIS [None]
  - ORAL DISORDER [None]
  - OSTEOARTHRITIS [None]
  - OSTEONECROSIS OF JAW [None]
  - OSTEOPOROSIS [None]
  - PAIN [None]
  - PAIN IN JAW [None]
  - PERIODONTITIS [None]
  - PHYSICAL DISABILITY [None]
  - PNEUMONITIS [None]
  - PULMONARY HYPERTENSION [None]
  - PURULENT DISCHARGE [None]
  - RADIATION SKIN INJURY [None]
  - RADIOTHERAPY [None]
  - RADIOTHERAPY TO BRAIN [None]
  - RIB FRACTURE [None]
  - SCAR [None]
  - SENSITIVITY OF TEETH [None]
  - SINUSITIS [None]
  - THORACOTOMY [None]
  - TOOTH DISORDER [None]
  - TOOTH EXTRACTION [None]
  - TOOTH FRACTURE [None]
  - TOOTH INFECTION [None]
  - TOOTH LOSS [None]
  - VISION BLURRED [None]
